FAERS Safety Report 24642706 (Version 1)
Quarter: 2024Q4

REPORT INFORMATION
  Report Type: Spontaneous
  Country: MK (occurrence: MK)
  Receive Date: 20241120
  Receipt Date: 20241120
  Transmission Date: 20250115
  Serious: Yes (Life-Threatening, Other)
  Sender: PFIZER
  Company Number: MK-PFIZER INC-PV202400148801

PATIENT
  Age: 36 Year
  Sex: Female

DRUGS (13)
  1. FLUCONAZOLE [Suspect]
     Active Substance: FLUCONAZOLE
     Dosage: UNK (DAY 1 TO 4)
     Dates: start: 2023
  2. MEROPENEM [Suspect]
     Active Substance: MEROPENEM
     Dosage: 1500 MG (3X500 MG; DAY 1 TO 10)
     Dates: start: 2023
  3. CASPOFUNGIN [Suspect]
     Active Substance: CASPOFUNGIN
     Dosage: UNK (DAY 5-DAY 10)
     Dates: start: 2023
  4. COLISTIN [Suspect]
     Active Substance: COLISTIN
     Indication: Transplant dysfunction
     Dosage: 3X1000 (DAY 6-10)
     Dates: start: 2023
  5. METHYLPREDNISOLONE [Suspect]
     Active Substance: METHYLPREDNISOLONE
     Dosage: 80 MG (1X80 MG; DAY1-DAY5)
     Dates: start: 2023, end: 2023
  6. METHYLPREDNISOLONE [Suspect]
     Active Substance: METHYLPREDNISOLONE
     Dosage: 160 MG (2X80 MG; DAY6-DAY10)
     Dates: start: 2023
  7. PREDNISOLONE [Concomitant]
     Active Substance: PREDNISOLONE
     Dosage: 5 MG
  8. PREDNISOLONE [Concomitant]
     Active Substance: PREDNISOLONE
     Dosage: 10 MG
  9. CYCLOSPORINE [Concomitant]
     Active Substance: CYCLOSPORINE
  10. TACROLIMUS [Concomitant]
     Active Substance: TACROLIMUS
     Dosage: 5-8 NG/ML
  11. MYCOPHENOLATE MOFETIL [Concomitant]
     Active Substance: MYCOPHENOLATE MOFETIL
     Dosage: 2X740 MG
  12. MYCOPHENOLATE MOFETIL [Concomitant]
     Active Substance: MYCOPHENOLATE MOFETIL
     Dosage: 2X540 MG
  13. IMURAN [Suspect]
     Active Substance: AZATHIOPRINE
     Dosage: 2X50

REACTIONS (2)
  - Respiratory failure [Unknown]
  - Condition aggravated [Unknown]
